FAERS Safety Report 21059478 (Version 1)
Quarter: 2022Q3

REPORT INFORMATION
  Report Type: Spontaneous
  Country: FR (occurrence: FR)
  Receive Date: 20220708
  Receipt Date: 20220708
  Transmission Date: 20221026
  Serious: Yes (Death)
  Sender: FDA-Public Use
  Company Number: None

PATIENT
  Age: 76 Year
  Sex: Female
  Weight: 88 kg

DRUGS (1)
  1. GADOBUTROL [Suspect]
     Active Substance: GADOBUTROL
     Indication: Magnetic resonance imaging
     Dosage: 7 MMOL, ONCE
     Dates: start: 20220614, end: 20220614

REACTIONS (4)
  - Anaphylactic shock [Fatal]
  - Dyspnoea [Fatal]
  - Cardiovascular disorder [Fatal]
  - Cardio-respiratory distress [Fatal]

NARRATIVE: CASE EVENT DATE: 20220614
